FAERS Safety Report 25134236 (Version 1)
Quarter: 2025Q1

REPORT INFORMATION
  Report Type: Spontaneous
  Country: US (occurrence: None)
  Receive Date: 20250327
  Receipt Date: 20250327
  Transmission Date: 20250409
  Serious: Yes (Hospitalization)
  Sender: FDA-CTU
  Company Number: None

PATIENT
  Age: 61 Year
  Sex: Male
  Weight: 70.5 kg

DRUGS (11)
  1. CALASPARGASE PEGOL-MKNL [Suspect]
     Active Substance: CALASPARGASE PEGOL-MKNL
     Indication: Ductal adenocarcinoma of pancreas
     Route: 042
     Dates: start: 20250131, end: 20250228
  2. CALASPARGASE PEGOL-MKNL [Suspect]
     Active Substance: CALASPARGASE PEGOL-MKNL
     Indication: Metastasis
  3. ESOMEPRAZOLE MAGNESIUM [Concomitant]
     Active Substance: ESOMEPRAZOLE MAGNESIUM
  4. OMEPRAZOLE [Concomitant]
     Active Substance: OMEPRAZOLE
  5. LIDOCAINE\PRILOCAINE [Concomitant]
     Active Substance: LIDOCAINE\PRILOCAINE
  6. lipase-protease-amylase [Concomitant]
  7. OLANZAPINE [Concomitant]
     Active Substance: OLANZAPINE
  8. ONDANSETRON [Concomitant]
     Active Substance: ONDANSETRON
  9. OXYCODONE [Concomitant]
     Active Substance: OXYCODONE
  10. DOCUSATE SODIUM [Concomitant]
     Active Substance: DOCUSATE SODIUM
  11. MARINOL [Concomitant]
     Active Substance: DRONABINOL

REACTIONS (9)
  - Asthenia [None]
  - Fatigue [None]
  - Condition aggravated [None]
  - Hypophagia [None]
  - Abdominal distension [None]
  - Ascites [None]
  - White blood cell count increased [None]
  - Hyponatraemia [None]
  - Hypotension [None]

NARRATIVE: CASE EVENT DATE: 20250326
